FAERS Safety Report 5486932-4 (Version None)
Quarter: 2007Q4

REPORT INFORMATION
  Report Type: 
  Country: None (occurrence: None)
  Receive Date: 20071016
  Receipt Date: 20070830
  Transmission Date: 20080405
  Serious: Yes (Death, Other)
  Sender: FDA-Public Use
  Company Number: KR-BRISTOL-MYERS SQUIBB COMPANY-13936588

PATIENT
  Age: 42 Year
  Sex: Male

DRUGS (8)
  1. STOCRIN CAPS [Suspect]
     Indication: ACQUIRED IMMUNODEFICIENCY SYNDROME
  2. ETHAMBUTOL HYDROCHLORIDE [Concomitant]
  3. FLUCONAZOLE [Concomitant]
  4. ISONIAZID [Concomitant]
  5. LAMIVUDINE [Concomitant]
  6. PYRAZINAMIDE [Concomitant]
  7. RIFAMPIN [Concomitant]
  8. ZIDOVUDINE [Concomitant]

REACTIONS (4)
  - HYPOXIA [None]
  - PANCYTOPENIA [None]
  - PNEUMONIA [None]
  - SEPTIC SHOCK [None]
